FAERS Safety Report 8542304-7 (Version None)
Quarter: 2012Q3

REPORT INFORMATION
  Report Type: 
  Country: None (occurrence: None)
  Receive Date: 20120726
  Receipt Date: 20120328
  Transmission Date: 20120928
  Serious: No
  Sender: FDA-Public Use
  Company Number: US-ASTRAZENECA-2009UW19167

PATIENT
  Sex: Female

DRUGS (8)
  1. NAVANE [Concomitant]
     Dates: start: 19951204
  2. SERZONE [Concomitant]
     Dosage: 125-250 MG QHS
     Dates: start: 20040519
  3. ABILIFY [Concomitant]
     Dates: end: 20030206
  4. ARTANE [Concomitant]
     Dates: start: 19951204
  5. SEROQUEL [Suspect]
     Dosage: 25-550 MG
     Route: 048
     Dates: start: 20030206, end: 20040519
  6. ZYPREXA [Concomitant]
     Dosage: 5 MG AT NIGHT
     Route: 048
     Dates: start: 20030212
  7. RISPERDAL [Concomitant]
     Dates: start: 20040519
  8. AMBIEN [Concomitant]
     Dosage: 10 MG QHS
     Route: 048
     Dates: start: 20030312

REACTIONS (7)
  - TOOTH LOSS [None]
  - OSTEOARTHRITIS [None]
  - ARTHRITIS [None]
  - WEIGHT INCREASED [None]
  - DIABETES MELLITUS [None]
  - PERIPHERAL VASCULAR DISORDER [None]
  - PAIN [None]
